FAERS Safety Report 10639728 (Version 1)
Quarter: 2014Q4

REPORT INFORMATION
  Report Type: Spontaneous
  Country: US (occurrence: None)
  Receive Date: 20141205
  Receipt Date: 20141205
  Transmission Date: 20150529
  Serious: Yes (Other)
  Sender: FDA-Public Use
  Company Number: None

PATIENT
  Age: 50 Year
  Sex: Female
  Weight: 77.11 kg

DRUGS (1)
  1. LEVOCETIRIZINE [Suspect]
     Active Substance: LEVOCETIRIZINE
     Indication: HOUSE DUST ALLERGY
     Route: 048
     Dates: start: 20141103, end: 20141203

REACTIONS (3)
  - Drug ineffective [None]
  - Product substitution issue [None]
  - Sinus headache [None]

NARRATIVE: CASE EVENT DATE: 20141128
